FAERS Safety Report 4387818-9 (Version None)
Quarter: 2004Q2

REPORT INFORMATION
  Report Type: 
  Country: None (occurrence: None)
  Receive Date: 20040630
  Receipt Date: 20040518
  Transmission Date: 20050107
  Serious: Yes (Other)
  Sender: FDA-Public Use
  Company Number: PHBS2004JP06668

PATIENT
  Age: 70 Year
  Sex: Male
  Weight: 46 kg

DRUGS (4)
  1. DIOVAN [Suspect]
     Dosage: 40 MG, ONCE/SINGLE
     Route: 048
     Dates: start: 20040310, end: 20040420
  2. TORSEMIDE [Suspect]
     Indication: HYPERTENSION
     Dosage: 4 MG/DAY
     Route: 048
     Dates: start: 20040310, end: 20040420
  3. TORSEMIDE [Suspect]
     Dosage: 8 MG/DAY
     Route: 048
     Dates: start: 20040426
  4. LASIX [Concomitant]
     Dosage: 20 MG, UNK
     Route: 048
     Dates: start: 20040331, end: 20040407

REACTIONS (10)
  - BETA 2 MICROGLOBULIN INCREASED [None]
  - BLOOD CREATININE INCREASED [None]
  - BLOOD UREA INCREASED [None]
  - CARDIAC FAILURE [None]
  - FACE OEDEMA [None]
  - HYPERTENSION [None]
  - HYPOKALAEMIA [None]
  - MALAISE [None]
  - OEDEMA PERIPHERAL [None]
  - RENAL DISORDER [None]
